FAERS Safety Report 7038987-3 (Version None)
Quarter: 2010Q4

REPORT INFORMATION
  Report Type: 
  Country: None (occurrence: None)
  Receive Date: 20101012
  Receipt Date: 20101004
  Transmission Date: 20110411
  Serious: Yes (Life-Threatening, Hospitalization)
  Sender: FDA-Public Use
  Company Number: US-US-EMD SERONO, INC.-231893J10USA

PATIENT
  Sex: Female
  Weight: 71 kg

DRUGS (5)
  1. REBIF [Suspect]
     Indication: MULTIPLE SCLEROSIS
     Route: 065
     Dates: start: 20050610, end: 20060201
  2. REBIF [Suspect]
     Route: 065
     Dates: start: 20061017, end: 20061218
  3. REBIF [Suspect]
     Route: 058
     Dates: start: 20100331
  4. UNSPECIFIED MEDICATION [Concomitant]
     Route: 065
  5. UNSPECIFIED MEDICATION [Concomitant]
     Indication: BLOOD CHOLESTEROL INCREASED

REACTIONS (8)
  - BREATH SOUNDS ABNORMAL [None]
  - CENTRAL NERVOUS SYSTEM LESION [None]
  - CONFUSIONAL STATE [None]
  - DIARRHOEA [None]
  - FATIGUE [None]
  - PNEUMONIA [None]
  - STAPHYLOCOCCAL INFECTION [None]
  - URINARY TRACT INFECTION [None]
